FAERS Safety Report 9008647 (Version 1)
Quarter: 2013Q1

REPORT INFORMATION
  Report Type: Spontaneous
  Country: US (occurrence: US)
  Receive Date: 20130111
  Receipt Date: 20130111
  Transmission Date: 20140127
  Serious: Yes (Life-Threatening, Other)
  Sender: FDA-Public Use
  Company Number: US-009507513-1004USA01571

PATIENT
  Age: 55 Year
  Sex: Female
  Weight: 106.59 kg

DRUGS (3)
  1. SINGULAIR [Suspect]
     Indication: ASTHMA
     Dosage: 10 MG, QD
     Route: 048
     Dates: start: 20090721, end: 20090730
  2. ADVAIR [Suspect]
     Dosage: 1 U, BID
     Dates: start: 20090721, end: 20090730
  3. PROAIR (ALBUTEROL SULFATE) [Suspect]
     Indication: ASTHMA

REACTIONS (5)
  - Depression [Unknown]
  - Dizziness [Unknown]
  - Headache [Unknown]
  - Negative thoughts [Unknown]
  - Respiratory disorder [Unknown]
